FAERS Safety Report 9254574 (Version 2)
Quarter: 2013Q2

REPORT INFORMATION
  Report Type: Spontaneous
  Country: US (occurrence: US)
  Receive Date: 20130425
  Receipt Date: 20130527
  Transmission Date: 20140414
  Serious: Yes (Other)
  Sender: FDA-Public Use
  Company Number: US-PFIZER INC-2013125397

PATIENT
  Age: 89 Year
  Sex: Female
  Weight: 46 kg

DRUGS (2)
  1. PREMARIN [Suspect]
     Indication: VULVOVAGINITIS
     Dosage: UNK
     Route: 067
     Dates: start: 2010
  2. SYNTHROID [Concomitant]
     Indication: THYROID DISORDER
     Dosage: UNK

REACTIONS (1)
  - Arterial occlusive disease [Unknown]
